FAERS Safety Report 9790652 (Version 1)
Quarter: 2013Q4

REPORT INFORMATION
  Report Type: Spontaneous
  Country: US (occurrence: US)
  Receive Date: 20131231
  Receipt Date: 20131231
  Transmission Date: 20140711
  Serious: No
  Sender: FDA-Public Use
  Company Number: US-PFIZER INC-2013373342

PATIENT
  Sex: Male

DRUGS (1)
  1. NEURONTIN [Suspect]
     Indication: PAIN
     Dosage: UNK
     Dates: start: 2013

REACTIONS (1)
  - Diplopia [Unknown]
